FAERS Safety Report 15388278 (Version 1)
Quarter: 2018Q3

REPORT INFORMATION
  Report Type: Spontaneous
  Country: FR (occurrence: FR)
  Receive Date: 20180915
  Receipt Date: 20180915
  Transmission Date: 20181010
  Serious: Yes (Hospitalization)
  Sender: FDA-Public Use
  Company Number: FR-SUN PHARMACEUTICAL INDUSTRIES LTD-2018RR-184445

PATIENT
  Age: 82 Year
  Sex: Female

DRUGS (2)
  1. TRAMADOL. [Suspect]
     Active Substance: TRAMADOL
     Indication: PAIN
     Dosage: 200 MG, DAILY
     Route: 048
     Dates: start: 20180501, end: 20180729
  2. TRAMADOL. [Suspect]
     Active Substance: TRAMADOL
     Dosage: 150 MG, DAILY
     Route: 048
     Dates: start: 20180708, end: 20180729

REACTIONS (2)
  - Vomiting [Recovered/Resolved]
  - Hyponatraemia [Recovered/Resolved]

NARRATIVE: CASE EVENT DATE: 20180712
